FAERS Safety Report 5737089-3 (Version None)
Quarter: 2008Q2

REPORT INFORMATION
  Report Type: 
  Country: None (occurrence: None)
  Receive Date: 20080512
  Receipt Date: 20080512
  Transmission Date: 20081010
  Serious: No
  Sender: FDA-Public Use
  Company Number: None

PATIENT
  Age: 62 Year
  Sex: Male
  Weight: 53 kg

DRUGS (2)
  1. FENTANYL-100 [Suspect]
     Indication: SURGERY
     Dates: start: 20080227, end: 20080227
  2. MIDAZOLAM HCL [Suspect]
     Indication: SURGERY
     Dates: start: 20080227, end: 20080227

REACTIONS (3)
  - BRADYCARDIA [None]
  - HYPOTENSION [None]
  - NO THERAPEUTIC RESPONSE [None]
